FAERS Safety Report 8986133 (Version 2)
Quarter: 2013Q1

REPORT INFORMATION
  Report Type: Spontaneous
  Country: DE (occurrence: None)
  Receive Date: 20121018
  Receipt Date: 20121114
  Transmission Date: 20140127
  Serious: Yes (Other)
  Sender: FDA-Public Use
  Company Number: 219029

PATIENT
  Age: 85 Year
  Sex: Male
  Weight: 105 kg

DRUGS (12)
  1. INNOHEP (TINZAPARIN SODIUM) [Suspect]
     Indication: PULMONARY EMBOLISM
     Route: 058
     Dates: start: 201112, end: 201210
  2. BISOPROLOL [Concomitant]
  3. DOMNIAL FORTE [Concomitant]
  4. FUROSEMIDE [Concomitant]
  5. GINKGO BILOBA [Concomitant]
  6. HCT [Concomitant]
  7. METAMZOL (METAMIZOLE) [Concomitant]
  8. SIMVAHEXAL (SIMVASTATIN) [Concomitant]
  9. TANNASULASIN (TAMSULOSIN) (0.4 MG) [Concomitant]
  10. ZOPICLAN (ZOPICLONE)? [Concomitant]
  11. LYRICA [Concomitant]
  12. MARCUMAR [Concomitant]

REACTIONS (3)
  - Gamma-glutamyltransferase increased [None]
  - Blood alkaline phosphatase increased [None]
  - Prothrombin time prolonged [None]
